FAERS Safety Report 7117627-9 (Version None)
Quarter: 2010Q4

REPORT INFORMATION
  Report Type: 
  Country: None (occurrence: None)
  Receive Date: 20101122
  Receipt Date: 20101110
  Transmission Date: 20110411
  Serious: Yes (Life-Threatening)
  Sender: FDA-Public Use
  Company Number: US-MYLANLABS-2010S1021025

PATIENT
  Age: 55 Year
  Sex: Female

DRUGS (2)
  1. AMITRIPTYLINE HCL [Suspect]
     Indication: SUICIDE ATTEMPT
     Dosage: 99 TABLETS
     Route: 048
  2. ALPRAZOLAM [Suspect]
     Indication: SUICIDE ATTEMPT
     Route: 048

REACTIONS (8)
  - ANTIDEPRESSANT DRUG CLEARANCE DECREASED [None]
  - COMA [None]
  - DELIRIUM [None]
  - ELECTROCARDIOGRAM QRS COMPLEX ABNORMAL [None]
  - HYPOTENSION [None]
  - INTENTIONAL OVERDOSE [None]
  - SUICIDE ATTEMPT [None]
  - TACHYCARDIA [None]
